FAERS Safety Report 23937487 (Version 4)
Quarter: 2024Q2

REPORT INFORMATION
  Report Type: Spontaneous
  Country: US (occurrence: US)
  Receive Date: 20240604
  Receipt Date: 20240621
  Transmission Date: 20240715
  Serious: Yes (Hospitalization, Other)
  Sender: FDA-Public Use
  Company Number: US-JAZZ PHARMACEUTICALS-2024-US-008373

PATIENT
  Age: 70 Year
  Sex: Male
  Weight: 73.1 kg

DRUGS (5)
  1. ZEPZELCA [Suspect]
     Active Substance: LURBINECTEDIN
     Indication: Small cell carcinoma
     Dosage: 5.5 MILLIGRAM, Q21 DAYS 2 DAYS (HOLD FOR 6 DAYS)
     Dates: start: 20240506, end: 20240528
  2. ZEPZELCA [Suspect]
     Active Substance: LURBINECTEDIN
     Dosage: 5.5 MILLIGRAM
     Dates: start: 20240528
  3. FIRMAGON [Concomitant]
     Active Substance: DEGARELIX ACETATE
  4. AMLODIPINE [Concomitant]
     Active Substance: AMLODIPINE BESYLATE
     Dosage: 5 MILLIGRAM
     Route: 048
  5. XGEVA [Concomitant]
     Active Substance: DENOSUMAB

REACTIONS (1)
  - Pancreatitis acute [Recovered/Resolved]

NARRATIVE: CASE EVENT DATE: 20240530
